FAERS Safety Report 6832022-5 (Version None)
Quarter: 2010Q3

REPORT INFORMATION
  Report Type: 
  Country: None (occurrence: None)
  Receive Date: 20100712
  Receipt Date: 20100701
  Transmission Date: 20110219
  Serious: Yes (Other)
  Sender: FDA-Public Use
  Company Number: PL-ROCHE-712958

PATIENT
  Age: 57 Year
  Sex: Female

DRUGS (11)
  1. HERCEPTIN [Suspect]
     Indication: PRODUCT USED FOR UNKNOWN INDICATION
     Dosage: LOADING DOSE: FIRST CYCLE
     Route: 065
     Dates: start: 20060101
  2. HERCEPTIN [Suspect]
     Route: 065
     Dates: start: 20060101
  3. HERCEPTIN [Suspect]
     Route: 065
     Dates: start: 20090301
  4. HERCEPTIN [Suspect]
     Route: 065
     Dates: start: 20090301
  5. XELODA [Suspect]
     Indication: PRODUCT USED FOR UNKNOWN INDICATION
     Dosage: DOSE REDUCED TO 75 %.
     Route: 065
     Dates: start: 20070401
  6. XELODA [Suspect]
     Dosage: DOSE REDUCED TO 50%
     Route: 065
     Dates: start: 20070501
  7. DOXORUBICIN HCL [Concomitant]
     Dosage: TOTAL 06 CYCLES WERE GIVEN
  8. TAXOTERE [Concomitant]
  9. FLUOROURACIL [Concomitant]
  10. CYCLOPHOSPHAMIDE [Concomitant]
  11. NAVELBINE [Concomitant]

REACTIONS (5)
  - DISEASE RECURRENCE [None]
  - DYSPNOEA [None]
  - PALMAR-PLANTAR ERYTHRODYSAESTHESIA SYNDROME [None]
  - PARAESTHESIA [None]
  - SKIN LESION [None]
